FAERS Safety Report 7777952-5 (Version None)
Quarter: 2011Q3

REPORT INFORMATION
  Report Type: 
  Country: None (occurrence: None)
  Receive Date: 20110926
  Receipt Date: 20110919
  Transmission Date: 20111222
  Serious: No
  Sender: FDA-Public Use
  Company Number: US-BIOGENIDEC-2011BI036285

PATIENT
  Sex: Female

DRUGS (2)
  1. BLOOD PRESSURE MEDICATIONS [Concomitant]
  2. TYSABRI [Suspect]
     Indication: MULTIPLE SCLEROSIS
     Route: 042
     Dates: start: 20110412, end: 20110620

REACTIONS (3)
  - MOOD SWINGS [None]
  - OEDEMA [None]
  - SOMNOLENCE [None]
